FAERS Safety Report 4687726-X (Version None)
Quarter: 2005Q2

REPORT INFORMATION
  Report Type: 
  Country: None (occurrence: None)
  Receive Date: 20050610
  Receipt Date: 20050519
  Transmission Date: 20051028
  Serious: Yes (Other)
  Sender: FDA-Public Use
  Company Number: US-SANOFI-SYNTHELABO-A03200501538

PATIENT
  Sex: Male
  Weight: 74.83 kg

DRUGS (5)
  1. PLAVIX [Suspect]
     Indication: DRUG USE FOR UNKNOWN INDICATION
     Route: 048
     Dates: start: 20050401, end: 20050501
  2. NAMENDA [Concomitant]
     Route: 048
     Dates: start: 20050101
  3. FOLTX [Concomitant]
     Dosage: UNK
     Route: 048
  4. REMINYL [Concomitant]
     Route: 048
  5. WELLBUTRIN [Concomitant]
     Route: 048

REACTIONS (3)
  - ASTHENIA [None]
  - DEMENTIA [None]
  - FATIGUE [None]
